FAERS Safety Report 16570693 (Version 1)
Quarter: 2019Q3

REPORT INFORMATION
  Report Type: Spontaneous
  Country: US (occurrence: US)
  Receive Date: 20190531
  Receipt Date: 20190531
  Transmission Date: 20191004
  Serious: Yes (Life-Threatening, Hospitalization)
  Sender: FDA-Public Use
  Company Number: None

PATIENT
  Age: 83 Year
  Sex: Male
  Weight: 70.7 kg

DRUGS (2)
  1. ASPIRIN. [Suspect]
     Active Substance: ASPIRIN
     Route: 048
     Dates: start: 20060329
  2. WARFARIN [Suspect]
     Active Substance: WARFARIN
     Indication: ATRIAL FIBRILLATION
     Dates: start: 20120412, end: 20190314

REACTIONS (8)
  - Anaemia [None]
  - Gastric ulcer [None]
  - Dyspnoea [None]
  - Asthenia [None]
  - Gastric haemorrhage [None]
  - Rectal haemorrhage [None]
  - Fall [None]
  - Dizziness [None]

NARRATIVE: CASE EVENT DATE: 20190314
